FAERS Safety Report 13988188 (Version 3)
Quarter: 2017Q3

REPORT INFORMATION
  Report Type: Spontaneous
  Country: PT (occurrence: PT)
  Receive Date: 20170919
  Receipt Date: 20170926
  Transmission Date: 20171128
  Serious: Yes (Other)
  Sender: FDA-Public Use
  Company Number: PHHY2017PT136994

PATIENT
  Sex: Male

DRUGS (1)
  1. SYSTANE ULTRA [Suspect]
     Active Substance: POLYETHYLENE GLYCOL 400\PROPYLENE GLYCOL
     Indication: PRODUCT USED FOR UNKNOWN INDICATION
     Route: 047

REACTIONS (5)
  - Eye swelling [Unknown]
  - Eye pruritus [Recovered/Resolved]
  - Ocular hyperaemia [Unknown]
  - Eye allergy [Unknown]
  - Eyelid oedema [Recovered/Resolved]
